FAERS Safety Report 6490509-1 (Version None)
Quarter: 2009Q4

REPORT INFORMATION
  Report Type: 
  Country: None (occurrence: None)
  Receive Date: 20091211
  Receipt Date: 20091012
  Transmission Date: 20100525
  Serious: No
  Sender: FDA-Public Use
  Company Number: US-BAYER-200917425BCC

PATIENT
  Age: 16 Year
  Sex: Female

DRUGS (3)
  1. MIDOL [Suspect]
     Indication: DRUG USE FOR UNKNOWN INDICATION
     Dosage: TOTAL DAILY DOSE: 660 MG  UNIT DOSE: 220 MG
     Route: 048
  2. PULMICORT [Concomitant]
     Route: 065
  3. XOPENEX [Concomitant]
     Route: 065

REACTIONS (1)
  - NO ADVERSE EVENT [None]
